FAERS Safety Report 13104179 (Version 1)
Quarter: 2017Q1

REPORT INFORMATION
  Report Type: Spontaneous
  Country: CA (occurrence: CA)
  Receive Date: 20170111
  Receipt Date: 20170111
  Transmission Date: 20170428
  Serious: Yes (Other)
  Sender: FDA-Public Use
  Company Number: CA-CONCORDIA PHARMACEUTICALS INC.-E2B_00007961

PATIENT
  Sex: Female

DRUGS (10)
  1. RITUXAN [Concomitant]
     Active Substance: RITUXIMAB
     Dates: start: 201208, end: 201302
  2. PLAQUENIL [Suspect]
     Active Substance: HYDROXYCHLOROQUINE SULFATE
     Indication: RHEUMATOID ARTHRITIS
     Route: 065
     Dates: start: 1986, end: 1988
  3. METHOTREXATE. [Concomitant]
     Active Substance: METHOTREXATE
     Dates: start: 1999, end: 2003
  4. GOLD [Concomitant]
     Active Substance: GOLD
  5. TOCILIZUMAB [Concomitant]
     Active Substance: TOCILIZUMAB
     Dates: start: 201302, end: 201404
  6. CERTOLIZUMAB PEGOL [Concomitant]
     Active Substance: CERTOLIZUMAB PEGOL
     Dates: start: 201204, end: 201207
  7. HUMIRA [Concomitant]
     Active Substance: ADALIMUMAB
  8. ENBREL [Concomitant]
     Active Substance: ETANERCEPT
     Dates: start: 1999, end: 20151110
  9. MOTRIN [Concomitant]
     Active Substance: IBUPROFEN
  10. XELJANZ [Concomitant]
     Active Substance: TOFACITINIB CITRATE
     Dates: start: 20151119

REACTIONS (2)
  - Drug ineffective [Unknown]
  - Retinal deposits [Unknown]
